FAERS Safety Report 22523034 (Version 1)
Quarter: 2023Q2

REPORT INFORMATION
  Report Type: Spontaneous
  Country: GB (occurrence: GB)
  Receive Date: 20230606
  Receipt Date: 20230606
  Transmission Date: 20230721
  Serious: Yes (Other)
  Sender: FDA-Public Use
  Company Number: US-Coherus Biosciences Inc.-2023-COH-GB000240

PATIENT

DRUGS (1)
  1. RANIBIZUMAB [Suspect]
     Active Substance: RANIBIZUMAB
     Indication: Neovascular age-related macular degeneration
     Dosage: 0.5 MG
     Dates: start: 20230427, end: 20230427

REACTIONS (1)
  - Keratouveitis [Recovering/Resolving]

NARRATIVE: CASE EVENT DATE: 20230428
